FAERS Safety Report 9330142 (Version 3)
Quarter: 2013Q2

REPORT INFORMATION
  Report Type: Report from Study
  Country: US (occurrence: US)
  Receive Date: 20130604
  Receipt Date: 20130611
  Transmission Date: 20140414
  Serious: Yes (Hospitalization)
  Sender: FDA-Public Use
  Company Number: US-US-EMD SERONO, INC.-7201578

PATIENT
  Age: 52 Year
  Sex: Female

DRUGS (4)
  1. REBIF [Suspect]
     Indication: MULTIPLE SCLEROSIS
     Route: 058
     Dates: start: 2008, end: 2008
  2. REBIF [Suspect]
     Route: 058
     Dates: start: 20120320, end: 201302
  3. REBIF [Suspect]
     Route: 058
     Dates: start: 201302
  4. REBIF [Suspect]
     Route: 058
     Dates: start: 20130320, end: 201306

REACTIONS (13)
  - Petit mal epilepsy [Recovering/Resolving]
  - Suicidal ideation [Recovering/Resolving]
  - Multiple sclerosis relapse [Recovering/Resolving]
  - Depression [Recovering/Resolving]
  - Paranoia [Recovering/Resolving]
  - Memory impairment [Unknown]
  - Dysuria [Unknown]
  - Feeling abnormal [Not Recovered/Not Resolved]
  - Irritability [Not Recovered/Not Resolved]
  - Feeling abnormal [Not Recovered/Not Resolved]
  - Pain [Not Recovered/Not Resolved]
  - Pyrexia [Unknown]
  - Injection site swelling [Unknown]
